FAERS Safety Report 14973929 (Version 1)
Quarter: 2018Q2

REPORT INFORMATION
  Report Type: Spontaneous
  Country: US (occurrence: US)
  Receive Date: 20180605
  Receipt Date: 20180605
  Transmission Date: 20180711
  Serious: Yes (Other)
  Sender: FDA-Public Use
  Company Number: US-SA-2018SA003497

PATIENT
  Age: 77 Year
  Sex: Female
  Weight: 74.83 kg

DRUGS (10)
  1. PARAPLATIN [Concomitant]
     Active Substance: CARBOPLATIN
     Indication: BREAST CANCER
  2. TAXOTERE [Suspect]
     Active Substance: DOCETAXEL
     Indication: BREAST CANCER
     Dosage: UNK, Q3W
     Route: 051
     Dates: start: 20160725, end: 20160725
  3. TAXOTERE [Suspect]
     Active Substance: DOCETAXEL
     Dosage: UNK, Q3W
     Route: 051
     Dates: start: 20161020, end: 20161020
  4. ANASTROZOLE. [Concomitant]
     Active Substance: ANASTROZOLE
     Dosage: UNK UNK,QD
     Route: 048
  5. PROCHLORPERAZINE. [Concomitant]
     Active Substance: PROCHLORPERAZINE
     Dosage: UNK UNK,UNK
     Route: 048
  6. HERCEPTIN [Concomitant]
     Active Substance: TRASTUZUMAB
  7. ONDANSETRON [Concomitant]
     Active Substance: ONDANSETRON
     Dosage: UNK UNK,UNK
     Route: 048
  8. LIDOCAINE;PRILOCAINE [Concomitant]
     Dosage: UNK UNK,UNK
     Route: 065
  9. RESTORIL [TEMAZEPAM] [Concomitant]
     Dosage: UNK UNK,QD
     Route: 048
  10. ZITHROMAX [Concomitant]
     Active Substance: AZITHROMYCIN DIHYDRATE
     Dosage: UNK UNK,UNK
     Route: 048

REACTIONS (1)
  - Alopecia [Recovering/Resolving]

NARRATIVE: CASE EVENT DATE: 20160717
